FAERS Safety Report 23474916 (Version 1)
Quarter: 2024Q1

REPORT INFORMATION
  Report Type: Report from Study
  Country: CA (occurrence: CA)
  Receive Date: 20240204
  Receipt Date: 20240204
  Transmission Date: 20240410
  Serious: Yes (Other)
  Sender: FDA-Public Use
  Company Number: CA-IPSEN Group, Research and Development-2023-20571

PATIENT
  Sex: Male

DRUGS (12)
  1. CABOMETYX [Suspect]
     Active Substance: CABOZANTINIB S-MALATE
     Indication: Renal cell carcinoma
     Dosage: 40 MG, QD
     Route: 048
     Dates: start: 20230608
  2. BUPROPION [Concomitant]
     Active Substance: BUPROPION
     Dosage: 150 MG
  3. AMLODIPINE [Concomitant]
     Active Substance: AMLODIPINE BESYLATE
     Dosage: 10 MG
  4. VITAMINS [Concomitant]
     Active Substance: VITAMINS
  5. LIPITOR [Concomitant]
     Active Substance: ATORVASTATIN CALCIUM
  6. MAGNESIUM OXIDE [Concomitant]
     Active Substance: MAGNESIUM OXIDE
  7. ALFUZOSIN [Concomitant]
     Active Substance: ALFUZOSIN
     Dosage: 10 MG
  8. PREGABALIN [Concomitant]
     Active Substance: PREGABALIN
  9. RAMIPRIL [Concomitant]
     Active Substance: RAMIPRIL
  10. VITAMIN D [Concomitant]
     Active Substance: VITAMIN D NOS
     Dosage: 1000 [IU]
  11. MORPHINE [Concomitant]
     Active Substance: MORPHINE
     Dosage: 5 PRN
  12. MORPHINE [Concomitant]
     Active Substance: MORPHINE
     Dosage: 5 PRN

REACTIONS (3)
  - Malignant neoplasm progression [Unknown]
  - Contusion [Unknown]
  - Epistaxis [Unknown]
